FAERS Safety Report 11433415 (Version 1)
Quarter: 2015Q3

REPORT INFORMATION
  Report Type: Spontaneous
  Country: FR (occurrence: None)
  Receive Date: 20150827
  Receipt Date: 20150827
  Transmission Date: 20151125
  Serious: Yes (Death)
  Sender: FDA-Public Use
  Company Number: COR_00365_2015

PATIENT

DRUGS (3)
  1. CARBOPLATIN (CARBOPLATIN) [Suspect]
     Active Substance: CARBOPLATIN
     Indication: NEPHROBLASTOMA
     Dosage: (DF)
  2. ACTINOMYCINES (ACTINOMYCIN) [Suspect]
     Active Substance: UNSPECIFIED INGREDIENT
     Indication: NEPHROBLASTOMA
     Dosage: (DF)
  3. VINCRISTINE (VINCRISTINE) [Suspect]
     Active Substance: VINCRISTINE
     Indication: NEPHROBLASTOMA
     Dosage: (DF)

REACTIONS (5)
  - Hypertensive heart disease [None]
  - Sepsis [None]
  - Venoocclusive disease [None]
  - Cardiac failure [None]
  - Pancytopenia [None]
